FAERS Safety Report 25796349 (Version 1)
Quarter: 2025Q3

REPORT INFORMATION
  Report Type: Spontaneous
  Country: US (occurrence: US)
  Receive Date: 20250912
  Receipt Date: 20250912
  Transmission Date: 20251020
  Serious: No
  Sender: BAYER HEALTHCARE LLC
  Company Number: US-BAYER-2025A120493

PATIENT
  Age: 77 Year
  Sex: Male

DRUGS (1)
  1. MIRALAX [Suspect]
     Active Substance: POLYETHYLENE GLYCOL 3350
     Indication: Gastrointestinal disorder
     Dosage: 1 DF, QOD
     Route: 048

REACTIONS (4)
  - Abdominal pain upper [Recovered/Resolved]
  - Rash [Unknown]
  - Abdominal discomfort [Recovered/Resolved]
  - Inappropriate schedule of product administration [None]
